FAERS Safety Report 13617426 (Version 1)
Quarter: 2017Q2

REPORT INFORMATION
  Report Type: Spontaneous
  Country: US (occurrence: US)
  Receive Date: 20170606
  Receipt Date: 20170606
  Transmission Date: 20170830
  Serious: No
  Sender: FDA-Public Use
  Company Number: US-SA-2017SA036716

PATIENT
  Age: 57 Year
  Sex: Female

DRUGS (3)
  1. NOVOLIN R [Concomitant]
     Active Substance: INSULIN HUMAN
  2. HUMULIN R [Concomitant]
     Active Substance: INSULIN HUMAN
     Indication: MALAISE
     Dosage: THREE TIMES A DAY AND AS NEEDED IF SHE WAS SICK
  3. LANTUS [Suspect]
     Active Substance: INSULIN GLARGINE
     Indication: DIABETES MELLITUS
     Dosage: 50-52 UNITS
     Route: 065
     Dates: start: 1997

REACTIONS (1)
  - Fibromyalgia [Not Recovered/Not Resolved]

NARRATIVE: CASE EVENT DATE: 201312
